FAERS Safety Report 19066209 (Version 3)
Quarter: 2021Q2

REPORT INFORMATION
  Report Type: Report from Study
  Country: GB (occurrence: GB)
  Receive Date: 20210328
  Receipt Date: 20210521
  Transmission Date: 20210717
  Serious: Yes (Hospitalization)
  Sender: FDA-Public Use
  Company Number: NVSC2021GB063750

PATIENT
  Sex: Female

DRUGS (3)
  1. SANDOSTATIN LAR DEPOT [Suspect]
     Active Substance: OCTREOTIDE ACETATE
  2. SANDOSTATIN LAR DEPOT [Suspect]
     Active Substance: OCTREOTIDE ACETATE
     Dosage: 30 MG, OTHER, EVERY 28 DAYS.
     Route: 030
     Dates: start: 202007
  3. SANDOSTATIN LAR DEPOT [Suspect]
     Active Substance: OCTREOTIDE ACETATE
     Indication: NEUROENDOCRINE TUMOUR
     Dosage: 30 MG (EVERY 28 DAYS)
     Route: 030
     Dates: start: 202006

REACTIONS (7)
  - Urinary tract infection [Recovering/Resolving]
  - Flushing [Unknown]
  - Sepsis [Recovered/Resolved]
  - Blood glucose fluctuation [Unknown]
  - Blood electrolytes abnormal [Unknown]
  - Chills [Recovering/Resolving]
  - Blood urea abnormal [Unknown]

NARRATIVE: CASE EVENT DATE: 20210312
